FAERS Safety Report 5159709-7 (Version None)
Quarter: 2006Q4

REPORT INFORMATION
  Report Type: 
  Country: None (occurrence: None)
  Receive Date: 20061129
  Receipt Date: 20061024
  Transmission Date: 20070319
  Serious: Yes (Other)
  Sender: FDA-Public Use
  Company Number: 2006UW20592

PATIENT
  Age: 69 Year
  Sex: Female
  Weight: 54.9 kg

DRUGS (3)
  1. TAMOXIFEN CITRATE [Suspect]
     Indication: BREAST CANCER FEMALE
     Route: 048
     Dates: start: 20041025, end: 20061001
  2. NEXIUM [Concomitant]
     Route: 048
  3. AMBIEN [Concomitant]

REACTIONS (7)
  - BONE PAIN [None]
  - BURNING SENSATION [None]
  - DEPRESSION [None]
  - IRRITABLE BOWEL SYNDROME [None]
  - MYALGIA [None]
  - NEURALGIA [None]
  - PAIN IN EXTREMITY [None]
